FAERS Safety Report 24127872 (Version 2)
Quarter: 2024Q3

REPORT INFORMATION
  Report Type: Spontaneous
  Country: HK (occurrence: HK)
  Receive Date: 20240723
  Receipt Date: 20240726
  Transmission Date: 20241017
  Serious: Yes (Other)
  Sender: ROCHE
  Company Number: HK-ROCHE-10000031981

PATIENT
  Age: 53 Year
  Sex: Male

DRUGS (2)
  1. ALECTINIB [Suspect]
     Active Substance: ALECTINIB
     Indication: Non-small cell lung cancer recurrent
     Route: 065
     Dates: start: 201606
  2. LORLATINIB [Suspect]
     Active Substance: LORLATINIB
     Indication: Non-small cell lung cancer recurrent
     Route: 065
     Dates: start: 202101

REACTIONS (4)
  - Metastases to central nervous system [Unknown]
  - Oedema [Unknown]
  - Arthralgia [Unknown]
  - Mood altered [Unknown]

NARRATIVE: CASE EVENT DATE: 20210101
